FAERS Safety Report 13058807 (Version 2)
Quarter: 2017Q1

REPORT INFORMATION
  Report Type: Spontaneous
  Country: US (occurrence: US)
  Receive Date: 20161223
  Receipt Date: 20170125
  Transmission Date: 20170428
  Serious: Yes (Death, Other)
  Sender: FDA-Public Use
  Company Number: US-WEST-WARD PHARMACEUTICALS CORP.-US-H14001-16-01834

PATIENT
  Age: 76 Year
  Sex: Male

DRUGS (7)
  1. GLIPIZIDE. [Concomitant]
     Active Substance: GLIPIZIDE
     Indication: PRODUCT USED FOR UNKNOWN INDICATION
     Route: 065
  2. LISINOPRIL (WATSON) [Suspect]
     Active Substance: LISINOPRIL
     Indication: HYPERTENSION
     Route: 065
  3. CALCIUM ACETATE. [Suspect]
     Active Substance: CALCIUM ACETATE
     Indication: RENAL FAILURE
  4. LISINOPRIL (WATSON) [Suspect]
     Active Substance: LISINOPRIL
     Indication: HYPERPHOSPHATAEMIA
  5. PROPRANOLOL [Concomitant]
     Active Substance: PROPRANOLOL HYDROCHLORIDE
     Indication: PRODUCT USED FOR UNKNOWN INDICATION
  6. LISINOPRIL (WATSON) [Suspect]
     Active Substance: LISINOPRIL
     Indication: RENAL FAILURE
  7. CALCIUM ACETATE. [Suspect]
     Active Substance: CALCIUM ACETATE
     Indication: HYPERPHOSPHATAEMIA
     Route: 048

REACTIONS (3)
  - Abdominal discomfort [Recovered/Resolved]
  - Product physical issue [None]
  - Death [Fatal]

NARRATIVE: CASE EVENT DATE: 20161203
